FAERS Safety Report 8760268 (Version 1)
Quarter: 2012Q4

REPORT INFORMATION
  Report Type: 
  Country: US (occurrence: US)
  Receive Date: 20120830
  Receipt Date: 20120830
  Transmission Date: 20130627
  Serious: No
  Sender: FDA-Public Use
  Company Number: US-009507513-1208USA008154

PATIENT

DRUGS (1)
  1. IMPLANON [Suspect]
     Dosage: for a period of 3 year
     Route: 059

REACTIONS (1)
  - Unintended pregnancy [Unknown]
